FAERS Safety Report 7783573-0 (Version None)
Quarter: 2011Q3

REPORT INFORMATION
  Report Type: 
  Country: None (occurrence: None)
  Receive Date: 20110928
  Receipt Date: 20110505
  Transmission Date: 20111222
  Serious: No
  Sender: FDA-Public Use
  Company Number: US-TYCO HEALTHCARE/MALLINCKRODT-T201100832

PATIENT
  Age: 44 Year
  Sex: Male

DRUGS (3)
  1. HYDROMORPHONE HCL [Suspect]
     Indication: FACIAL PAIN
     Dosage: 2 MG Q6 HOURS
     Route: 048
     Dates: start: 20110422
  2. HYDROMORPHONE HCL [Suspect]
     Indication: BACK PAIN
     Dosage: 4 MG Q6 HOURS
     Route: 048
     Dates: start: 20110423
  3. XANAX [Concomitant]

REACTIONS (2)
  - MALAISE [None]
  - DRUG INEFFECTIVE [None]
